FAERS Safety Report 20378361 (Version 1)
Quarter: 2022Q1

REPORT INFORMATION
  Report Type: Spontaneous
  Country: US (occurrence: None)
  Receive Date: 20220125
  Receipt Date: 20220125
  Transmission Date: 20220423
  Serious: Yes (Death)
  Sender: FDA-Public Use
  Company Number: None

PATIENT
  Age: 76 Year
  Sex: Female

DRUGS (1)
  1. PROLIA [Suspect]
     Active Substance: DENOSUMAB
     Dosage: 160MG OTHER SUBCUTANEOUS
     Route: 058
     Dates: start: 20220125, end: 20220125

REACTIONS (1)
  - Death [None]

NARRATIVE: CASE EVENT DATE: 20211224
